FAERS Safety Report 6061814-8 (Version None)
Quarter: 2009Q1

REPORT INFORMATION
  Report Type: 
  Country: None (occurrence: None)
  Receive Date: 20090202
  Receipt Date: 20090120
  Transmission Date: 20090719
  Serious: Yes (Other)
  Sender: FDA-Public Use
  Company Number: DE-ELI_LILLY_AND_COMPANY-DE200901003916

PATIENT
  Age: 58 Year
  Sex: Male

DRUGS (2)
  1. BYETTA [Suspect]
     Indication: DIABETES MELLITUS
     Dosage: 10 UG, 2/D
     Route: 065
     Dates: start: 20080916, end: 20090112
  2. METFORMIN [Concomitant]
     Dosage: 1000 MG, UNKNOWN
     Route: 065

REACTIONS (2)
  - ARRHYTHMIA [None]
  - HEART RATE IRREGULAR [None]
